FAERS Safety Report 7821364-2 (Version None)
Quarter: 2011Q4

REPORT INFORMATION
  Report Type: 
  Country: None (occurrence: None)
  Receive Date: 20111018
  Receipt Date: 20110706
  Transmission Date: 20120403
  Serious: No
  Sender: FDA-Public Use
  Company Number: US-ASTRAZENECA-2011SE40275

PATIENT
  Sex: Female

DRUGS (4)
  1. SYMBICORT [Suspect]
     Indication: ASTHMA
     Route: 055
  2. STALEVO 100 [Concomitant]
  3. ALVESCO [Suspect]
     Indication: ASTHMA
     Dosage: 1 PUFF
     Route: 055
  4. SYNTHROID [Concomitant]

REACTIONS (6)
  - TREMOR [None]
  - MASKED FACIES [None]
  - PARAESTHESIA ORAL [None]
  - DYSPNOEA [None]
  - JAW DISORDER [None]
  - SPEECH DISORDER [None]
